FAERS Safety Report 25710504 (Version 1)
Quarter: 2025Q3

REPORT INFORMATION
  Report Type: Spontaneous
  Country: EU (occurrence: EU)
  Receive Date: 20250821
  Receipt Date: 20250821
  Transmission Date: 20251021
  Serious: Yes (Other)
  Sender: ALKEM
  Company Number: EU-ALKEM LABORATORIES LIMITED-DE-ALKEM-2025-08712

PATIENT
  Age: 77 Year
  Sex: Female

DRUGS (2)
  1. CEFUROXIME AXETIL [Suspect]
     Active Substance: CEFUROXIME AXETIL
     Indication: Urethritis
     Dosage: 250 MILLIGRAM, BID (FILM-COATED TABLET)
     Route: 065
     Dates: start: 20250723
  2. AMOXICILLIN [Suspect]
     Active Substance: AMOXICILLIN
     Indication: Product used for unknown indication
     Route: 065

REACTIONS (5)
  - Polyneuropathy [Unknown]
  - Neuromyopathy [Unknown]
  - Nerve injury [Unknown]
  - Dizziness [Recovered/Resolved]
  - Nausea [Recovered/Resolved]
